FAERS Safety Report 14460707 (Version 1)
Quarter: 2018Q1

REPORT INFORMATION
  Report Type: Spontaneous
  Country: US (occurrence: US)
  Receive Date: 20180130
  Receipt Date: 20180130
  Transmission Date: 20180509
  Serious: Yes (Hospitalization, Disabling)
  Sender: FDA-Public Use
  Company Number: None

PATIENT
  Age: 67 Year
  Sex: Female
  Weight: 87.54 kg

DRUGS (14)
  1. NITRO [Concomitant]
     Active Substance: NITROGLYCERIN
  2. LYRICA [Concomitant]
     Active Substance: PREGABALIN
  3. COREG [Concomitant]
     Active Substance: CARVEDILOL
  4. ISOSORBID MONO [Concomitant]
  5. NORVASC [Concomitant]
     Active Substance: AMLODIPINE BESYLATE
  6. PLAQUENIL [Concomitant]
     Active Substance: HYDROXYCHLOROQUINE SULFATE
  7. PLAVIX [Concomitant]
     Active Substance: CLOPIDOGREL BISULFATE
  8. PROZAC [Concomitant]
     Active Substance: FLUOXETINE HYDROCHLORIDE
  9. NORTRIPTYLIN [Concomitant]
     Active Substance: NORTRIPTYLINE
  10. SINGULAIR [Concomitant]
     Active Substance: MONTELUKAST SODIUM
  11. XANOX [Concomitant]
  12. PRALUENT [Suspect]
     Active Substance: ALIROCUMAB
     Indication: ARTERIOSCLEROSIS
     Dates: start: 20171129, end: 20171213
  13. WELCHOL [Concomitant]
     Active Substance: COLESEVELAM HYDROCHLORIDE
  14. LISINOPRIL. [Concomitant]
     Active Substance: LISINOPRIL

REACTIONS (20)
  - Gait disturbance [None]
  - Decreased appetite [None]
  - Back pain [None]
  - Musculoskeletal stiffness [None]
  - Diarrhoea [None]
  - Productive cough [None]
  - Headache [None]
  - Arthralgia [None]
  - Abdominal pain [None]
  - Asthenia [None]
  - Discomfort [None]
  - Hyperhidrosis [None]
  - Micturition urgency [None]
  - Myalgia [None]
  - Rhinorrhoea [None]
  - Chills [None]
  - Pain [None]
  - Nasal congestion [None]
  - Insomnia [None]
  - Muscle spasms [None]

NARRATIVE: CASE EVENT DATE: 201711
